FAERS Safety Report 10267119 (Version 1)
Quarter: 2014Q2

REPORT INFORMATION
  Report Type: Spontaneous
  Country: US (occurrence: None)
  Receive Date: 20140625
  Receipt Date: 20140625
  Transmission Date: 20141212
  Serious: No
  Sender: FDA-Public Use
  Company Number: None

PATIENT
  Age: 82 Year
  Sex: Female

DRUGS (1)
  1. SIMVASTATIN 20 MG [Suspect]
     Indication: BLOOD CHOLESTEROL INCREASED
     Dosage: 1 TABLET, ONCE DAILY, TAKEN BY MOUTH
     Route: 048

REACTIONS (3)
  - Proteinuria [None]
  - Renal disorder [None]
  - Chromaturia [None]
